FAERS Safety Report 9379462 (Version 1)
Quarter: 2013Q3

REPORT INFORMATION
  Report Type: Spontaneous
  Country: US (occurrence: US)
  Receive Date: 20130702
  Receipt Date: 20130702
  Transmission Date: 20140515
  Serious: No
  Sender: FDA-Public Use
  Company Number: US-ASTRAZENECA-2013SE40601

PATIENT
  Age: 78 Year
  Sex: Male
  Weight: 57.2 kg

DRUGS (5)
  1. BRILINTA [Suspect]
     Indication: MYOCARDIAL INFARCTION
     Route: 048
     Dates: start: 201208
  2. BRILINTA [Suspect]
     Indication: MYOCARDIAL INFARCTION
     Route: 048
  3. BABY ASPIRIN [Concomitant]
     Indication: CARDIAC DISORDER
     Dates: start: 201208
  4. LEBOXYL [Concomitant]
     Indication: THYROID DISORDER
     Dosage: 100 MCG DAILY
  5. FLONASE [Concomitant]
     Indication: NASAL DISCOMFORT

REACTIONS (12)
  - Sleep disorder due to a general medical condition [Unknown]
  - Blood testosterone decreased [Unknown]
  - Anaemia [Unknown]
  - Blood iron decreased [Unknown]
  - Burning sensation [Unknown]
  - Abdominal pain upper [Unknown]
  - Nausea [Unknown]
  - Diarrhoea [Unknown]
  - Constipation [Unknown]
  - Rash [Recovering/Resolving]
  - Pruritus [Unknown]
  - Intentional drug misuse [Unknown]
